FAERS Safety Report 10308826 (Version 1)
Quarter: 2014Q3

REPORT INFORMATION
  Report Type: Report from Study
  Country: CA (occurrence: CA)
  Receive Date: 20140716
  Receipt Date: 20140716
  Transmission Date: 20150326
  Serious: Yes (Other)
  Sender: FDA-Public Use
  Company Number: CA-JNJFOC-20140706114

PATIENT
  Sex: Female
  Weight: 88.1 kg

DRUGS (2)
  1. SOLU-CORTEF [Concomitant]
     Active Substance: HYDROCORTISONE SODIUM SUCCINATE
     Indication: PREMEDICATION
     Dosage: 15 MINUTES PRIOR INFLIXIMAB INFUSION
     Route: 042
  2. REMICADE [Suspect]
     Active Substance: INFLIXIMAB
     Indication: CROHN^S DISEASE
     Route: 042

REACTIONS (6)
  - Rash [Unknown]
  - Anal ulcer [Unknown]
  - Pain in jaw [Unknown]
  - Drug effect decreased [Unknown]
  - Arthralgia [Unknown]
  - Vaginal infection [Unknown]
